FAERS Safety Report 8339115-4 (Version None)
Quarter: 2012Q2

REPORT INFORMATION
  Report Type: 
  Country: None (occurrence: None)
  Receive Date: 20120507
  Receipt Date: 20120502
  Transmission Date: 20120825
  Serious: No
  Sender: FDA-Public Use
  Company Number: US-PFIZER INC-2012064969

PATIENT
  Sex: Female

DRUGS (3)
  1. BACTRIM [Suspect]
     Dosage: UNK
  2. ZOLOFT [Suspect]
     Dosage: UNK
  3. TRAMADOL HYDROCHLORIDE [Suspect]
     Dosage: UNK

REACTIONS (2)
  - URTICARIA [None]
  - HYPERSENSITIVITY [None]
